FAERS Safety Report 16891100 (Version 2)
Quarter: 2019Q4

REPORT INFORMATION
  Report Type: Report from Study
  Country: CL (occurrence: CL)
  Receive Date: 20191007
  Receipt Date: 20191209
  Transmission Date: 20200122
  Serious: Yes (Other)
  Sender: FDA-Public Use
  Company Number: CL-BRISTOL-MYERS SQUIBB COMPANY-BMS-2018-052426

PATIENT
  Sex: Female

DRUGS (1)
  1. ABATACEPT [Suspect]
     Active Substance: ABATACEPT
     Indication: RHEUMATOID ARTHRITIS
     Dosage: 125 MG, QWK
     Route: 058
     Dates: start: 20180214

REACTIONS (6)
  - Arthralgia [Recovering/Resolving]
  - Hand deformity [Not Recovered/Not Resolved]
  - Osteoarthritis [Recovered/Resolved]
  - Pain [Recovering/Resolving]
  - Nasopharyngitis [Unknown]
  - Pain in extremity [Recovering/Resolving]
